FAERS Safety Report 5981102-5 (Version None)
Quarter: 2008Q4

REPORT INFORMATION
  Report Type: 
  Country: None (occurrence: None)
  Receive Date: 20081202
  Receipt Date: 20081202
  Transmission Date: 20090506
  Serious: Yes (Disabling)
  Sender: FDA-Public Use
  Company Number: None

PATIENT
  Age: 48 Year
  Sex: Male
  Weight: 103.8737 kg

DRUGS (1)
  1. VARENICLINE 0.5 MG PFIZER [Suspect]
     Indication: SMOKING CESSATION THERAPY

REACTIONS (1)
  - ABDOMINAL DISCOMFORT [None]
